FAERS Safety Report 14320674 (Version 1)
Quarter: 2017Q4

REPORT INFORMATION
  Report Type: Report from Study
  Country: JP (occurrence: JP)
  Receive Date: 20171223
  Receipt Date: 20171223
  Transmission Date: 20180321
  Serious: Yes (Hospitalization, Other)
  Sender: FDA-Public Use
  Company Number: JP-ROCHE-2045181

PATIENT
  Age: 54 Year
  Sex: Female

DRUGS (5)
  1. RANIMUSTINE [Suspect]
     Active Substance: RANIMUSTINE
     Indication: CENTRAL NERVOUS SYSTEM LYMPHOMA
     Dosage: MEAM REGIMEN: ON DAY -7
     Route: 065
  2. ETOPOSIDE. [Suspect]
     Active Substance: ETOPOSIDE
     Indication: CENTRAL NERVOUS SYSTEM LYMPHOMA
     Dosage: MEAM REGIMEN ON DAYS -6 TO -3
     Route: 065
  3. RITUXIMAB. [Suspect]
     Active Substance: RITUXIMAB
     Indication: CENTRAL NERVOUS SYSTEM LYMPHOMA
     Route: 042
  4. MELPHALAN. [Suspect]
     Active Substance: MELPHALAN
     Indication: CENTRAL NERVOUS SYSTEM LYMPHOMA
     Dosage: MEAM REGIMEN: ON DAY -2
     Route: 065
  5. CYTARABINE. [Suspect]
     Active Substance: CYTARABINE
     Indication: CENTRAL NERVOUS SYSTEM LYMPHOMA
     Dosage: MEAM REGIMEN: ON DAYS -6 TO -3
     Route: 065

REACTIONS (3)
  - Haemolytic anaemia [Recovered/Resolved]
  - Red cell fragmentation syndrome [Recovered/Resolved]
  - Febrile neutropenia [Unknown]
